FAERS Safety Report 8803482 (Version 2)
Quarter: 2012Q4

REPORT INFORMATION
  Report Type: 
  Country: US (occurrence: US)
  Receive Date: 20120924
  Receipt Date: 20121005
  Transmission Date: 20130627
  Serious: Yes (Death, Hospitalization)
  Sender: FDA-Public Use
  Company Number: US-ACTELION-A-US2012-63023

PATIENT
  Age: 56 Year
  Sex: Female

DRUGS (1)
  1. TRACLEER [Suspect]
     Indication: PULMONARY ARTERIAL HYPERTENSION
     Dosage: 125 mg, bid
     Route: 048
     Dates: start: 20050105

REACTIONS (14)
  - Scleroderma [Fatal]
  - Respiratory failure [Fatal]
  - Traumatic liver injury [Not Recovered/Not Resolved]
  - Pulmonary oedema [Unknown]
  - Pneumonia [Recovering/Resolving]
  - Device related infection [Recovering/Resolving]
  - Pulmonary mass [Recovering/Resolving]
  - Pericardial effusion [Not Recovered/Not Resolved]
  - Hypoxia [Recovering/Resolving]
  - Cough [Unknown]
  - Exercise tolerance decreased [Unknown]
  - Fatigue [Unknown]
  - Dyspnoea [Unknown]
  - Mechanical ventilation [Not Recovered/Not Resolved]
